FAERS Safety Report 11556707 (Version 1)
Quarter: 2015Q3

REPORT INFORMATION
  Report Type: Spontaneous
  Country: US (occurrence: US)
  Receive Date: 20150916
  Receipt Date: 20150916
  Transmission Date: 20151125
  Serious: No
  Sender: FDA-Public Use
  Company Number: US-ELI_LILLY_AND_COMPANY-US200806002286

PATIENT
  Age: 31 Year
  Sex: Male

DRUGS (2)
  1. CITRACAL [Concomitant]
     Active Substance: CALCIUM CITRATE
     Indication: OSTEOPOROSIS
     Dosage: 4 D/F, DAILY (1/D)
  2. FORTEO [Suspect]
     Active Substance: TERIPARATIDE
     Indication: OSTEOPOROSIS
     Dates: start: 20080430, end: 2008

REACTIONS (6)
  - Muscle spasms [Recovered/Resolved]
  - Vitamin D decreased [Recovered/Resolved]
  - Dyspnoea [Recovered/Resolved]
  - Blood iron decreased [Recovered/Resolved]
  - Blood alkaline phosphatase [Not Recovered/Not Resolved]
  - Red blood cell sedimentation rate increased [Not Recovered/Not Resolved]

NARRATIVE: CASE EVENT DATE: 20080527
